FAERS Safety Report 10461164 (Version 1)
Quarter: 2014Q3

REPORT INFORMATION
  Report Type: Spontaneous
  Country: JP (occurrence: JP)
  Receive Date: 20140918
  Receipt Date: 20140918
  Transmission Date: 20150326
  Serious: Yes (Hospitalization, Other)
  Sender: FDA-Public Use
  Company Number: JP-RANBAXY-2014RR-85358

PATIENT
  Age: 55 Year
  Sex: Male

DRUGS (4)
  1. LINEZOLIDE [Suspect]
     Active Substance: LINEZOLID
     Indication: POST PROCEDURAL INFECTION
     Dosage: UNK
     Route: 065
  2. GENTAMICIN [Suspect]
     Active Substance: GENTAMICIN
     Indication: SPINAL CORD INFECTION
     Dosage: UNK
     Route: 065
  3. CLINDAMYCIN [Suspect]
     Active Substance: CLINDAMYCIN\CLINDAMYCIN PHOSPHATE
     Indication: SPINAL CORD INFECTION
     Dosage: UNK
     Route: 065
  4. CEFOTIAM [Suspect]
     Active Substance: CEFOTIAM
     Indication: SPINAL CORD INFECTION
     Dosage: UNK
     Route: 065

REACTIONS (1)
  - Fungal infection [Recovered/Resolved]
